FAERS Safety Report 15013319 (Version 1)
Quarter: 2018Q2

REPORT INFORMATION
  Report Type: Spontaneous
  Country: US (occurrence: US)
  Receive Date: 20180522
  Receipt Date: 20180522
  Transmission Date: 20180711
  Serious: Yes (Other)
  Sender: FDA-Public Use
  Company Number: None

PATIENT
  Age: 59 Year
  Sex: Female

DRUGS (1)
  1. VOTRIENT [Suspect]
     Active Substance: PAZOPANIB HYDROCHLORIDE
     Indication: RENAL CELL CARCINOMA
     Route: 048
     Dates: start: 201605

REACTIONS (5)
  - Weight decreased [None]
  - Diarrhoea [None]
  - Muscle spasms [None]
  - Blood pressure increased [None]
  - Oesophageal ulcer [None]

NARRATIVE: CASE EVENT DATE: 201805
